FAERS Safety Report 17648087 (Version 1)
Quarter: 2020Q2

REPORT INFORMATION
  Report Type: Spontaneous
  Country: US (occurrence: US)
  Receive Date: 20200409
  Receipt Date: 20200409
  Transmission Date: 20200713
  Serious: Yes (Hospitalization, Other)
  Sender: FDA-Public Use
  Company Number: US-LUPIN PHARMACEUTICALS INC.-2020-01601

PATIENT
  Age: 4 Year

DRUGS (1)
  1. CLONIDINE. [Suspect]
     Active Substance: CLONIDINE
     Indication: PRODUCT USED FOR UNKNOWN INDICATION
     Dosage: UNK, OVERDOSE
     Route: 048

REACTIONS (4)
  - Overdose [Unknown]
  - Mental impairment [Recovered/Resolved]
  - Obstructive airways disorder [Recovered/Resolved]
  - Bradycardia [Recovered/Resolved]
